FAERS Safety Report 24022675 (Version 2)
Quarter: 2024Q2

REPORT INFORMATION
  Report Type: Spontaneous
  Country: CN (occurrence: CN)
  Receive Date: 20240627
  Receipt Date: 20240627
  Transmission Date: 20240715
  Serious: No
  Sender: FDA-Public Use
  Company Number: CN-ROCHE-3575576

PATIENT
  Sex: Female

DRUGS (2)
  1. ROZLYTREK [Suspect]
     Active Substance: ENTRECTINIB
     Indication: Neoplasm
     Dosage: UNKNOWN DOSE
     Route: 048
     Dates: start: 20240516
  2. ROZLYTREK [Suspect]
     Active Substance: ENTRECTINIB
     Dosage: REDUCED THE DOSE TO 200MG
     Route: 048
     Dates: start: 20240601

REACTIONS (4)
  - Asthenia [Not Recovered/Not Resolved]
  - Oedema [Not Recovered/Not Resolved]
  - Alopecia [Not Recovered/Not Resolved]
  - Syncope [Recovering/Resolving]

NARRATIVE: CASE EVENT DATE: 20240531
